FAERS Safety Report 7161068-5 (Version None)
Quarter: 2010Q4

REPORT INFORMATION
  Report Type: 
  Country: None (occurrence: None)
  Receive Date: 20101215
  Receipt Date: 20101209
  Transmission Date: 20110411
  Serious: Yes (Other)
  Sender: FDA-Public Use
  Company Number: PL-BIOGENIDEC-2009BI032977

PATIENT
  Age: 35 Year
  Sex: Female

DRUGS (3)
  1. TYSABRI [Suspect]
     Indication: MULTIPLE SCLEROSIS
     Route: 042
     Dates: start: 20090624, end: 20090901
  2. BACLOFEN [Concomitant]
     Indication: MUSCLE SPASTICITY
  3. SIRDALUD [Concomitant]
     Indication: MUSCLE SPASTICITY

REACTIONS (3)
  - CONSCIOUSNESS FLUCTUATING [None]
  - MULTIPLE SCLEROSIS [None]
  - VOMITING [None]
